FAERS Safety Report 8371126-5 (Version None)
Quarter: 2012Q2

REPORT INFORMATION
  Report Type: 
  Country: None (occurrence: None)
  Receive Date: 20120518
  Receipt Date: 20120511
  Transmission Date: 20120825
  Serious: No
  Sender: FDA-Public Use
  Company Number: US-ASTRAZENECA-2012SE30774

PATIENT
  Age: 49 Year
  Sex: Male

DRUGS (1)
  1. SEROQUEL XR [Suspect]
     Route: 048

REACTIONS (4)
  - LEUKOPENIA [None]
  - HALLUCINATION [None]
  - INTENTIONAL DRUG MISUSE [None]
  - DELUSION [None]
